FAERS Safety Report 16777483 (Version 1)
Quarter: 2019Q3

REPORT INFORMATION
  Report Type: Report from Study
  Country: CA (occurrence: CA)
  Receive Date: 20190905
  Receipt Date: 20190905
  Transmission Date: 20191005
  Serious: Yes (Other)
  Sender: FDA-Public Use
  Company Number: CA-JNJFOC-20190838932

PATIENT
  Age: 60 Year
  Sex: Female
  Weight: 97.7 kg

DRUGS (3)
  1. SIMPONI [Suspect]
     Active Substance: GOLIMUMAB
     Route: 042
     Dates: start: 20190612
  2. CELECOXIB. [Suspect]
     Active Substance: CELECOXIB
     Indication: RHEUMATOID ARTHRITIS
     Dates: start: 20190114, end: 20190827
  3. SIMPONI [Suspect]
     Active Substance: GOLIMUMAB
     Indication: RHEUMATOID ARTHRITIS
     Route: 042
     Dates: start: 20190604

REACTIONS (5)
  - Diarrhoea [Recovered/Resolved]
  - Hypoaesthesia [Unknown]
  - Arthralgia [Recovering/Resolving]
  - Rectal haemorrhage [Recovered/Resolved]
  - Rhinorrhoea [Unknown]

NARRATIVE: CASE EVENT DATE: 2019
